FAERS Safety Report 7321084-7 (Version None)
Quarter: 2011Q1

REPORT INFORMATION
  Report Type: 
  Country: None (occurrence: None)
  Receive Date: 20110228
  Receipt Date: 20110218
  Transmission Date: 20110831
  Serious: Yes (Other)
  Sender: FDA-Public Use
  Company Number: US-JNJFOC-20110205932

PATIENT
  Sex: Female
  Weight: 64.41 kg

DRUGS (3)
  1. LEVOTHYROXINE SODIUM [Concomitant]
     Indication: HYPOTHYROIDISM
  2. REMICADE [Suspect]
     Indication: RHEUMATOID ARTHRITIS
     Route: 042
  3. ATENOLOL [Concomitant]
     Indication: BLOOD PRESSURE ABNORMAL
     Route: 048

REACTIONS (3)
  - MUSCULOSKELETAL CHEST PAIN [None]
  - PRODUCTIVE COUGH [None]
  - COMPUTERISED TOMOGRAM ABNORMAL [None]
